FAERS Safety Report 19004356 (Version 1)
Quarter: 2021Q1

REPORT INFORMATION
  Report Type: Report from Study
  Country: IN (occurrence: IN)
  Receive Date: 20210312
  Receipt Date: 20210312
  Transmission Date: 20210420
  Serious: Yes (Other)
  Sender: FDA-Public Use
  Company Number: IN-ASTRAZENECA-2021A111504

PATIENT
  Age: 53 Year
  Sex: Male
  Weight: 117 kg

DRUGS (5)
  1. ONDERO MET [Concomitant]
     Dosage: 2.5/500, 1?0?1, AFTER MEAL
     Route: 065
  2. ATORICA [Concomitant]
     Dosage: 20, 0?0?1, AFTER MEAL
     Route: 065
  3. THYRONORM [Concomitant]
     Active Substance: LEVOTHYROXINE
     Dosage: 125, 1?0?0, BEFORE MEAL
     Route: 065
  4. XIGDUO XR [Suspect]
     Active Substance: DAPAGLIFLOZIN PROPANEDIOL\METFORMIN HYDROCHLORIDE
     Indication: DIABETES MELLITUS
     Dosage: 5/1000, 1?0?0 AFTER MEAL
     Route: 048
  5. ZOLFRESH [Concomitant]
     Active Substance: ZOLPIDEM TARTRATE
     Dosage: 10, 0?0?1, AFTER MEAL
     Route: 065

REACTIONS (2)
  - Abdominal distension [Recovering/Resolving]
  - Urine output decreased [Recovering/Resolving]
